FAERS Safety Report 20314652 (Version 1)
Quarter: 2022Q1

REPORT INFORMATION
  Report Type: Spontaneous
  Country: US (occurrence: US)
  Receive Date: 20220110
  Receipt Date: 20220110
  Transmission Date: 20220423
  Serious: No
  Sender: FDA-Public Use
  Company Number: US-SUNOVION-2021SUN004737

PATIENT
  Sex: Female

DRUGS (1)
  1. LATUDA [Suspect]
     Active Substance: LURASIDONE HYDROCHLORIDE
     Indication: Weight decreased
     Dosage: UNK
     Route: 048

REACTIONS (4)
  - Feeling jittery [Unknown]
  - Insomnia [Unknown]
  - Restlessness [Unknown]
  - Off label use [Unknown]
